FAERS Safety Report 13856021 (Version 1)
Quarter: 2017Q3

REPORT INFORMATION
  Report Type: Spontaneous
  Country: US (occurrence: US)
  Receive Date: 20170810
  Receipt Date: 20170810
  Transmission Date: 20171127
  Serious: Yes (Life-Threatening, Hospitalization)
  Sender: FDA-Public Use
  Company Number: US-ELI_LILLY_AND_COMPANY-US201708003600

PATIENT
  Age: 63 Year
  Sex: Male
  Weight: 103 kg

DRUGS (7)
  1. DOXORUBICIN [Suspect]
     Active Substance: DOXORUBICIN
     Indication: PRODUCT USED FOR UNKNOWN INDICATION
     Dosage: 168 MG, SINGLE
     Route: 042
     Dates: start: 20170602
  2. CARVEDILOL. [Concomitant]
     Active Substance: CARVEDILOL
     Indication: PRODUCT USED FOR UNKNOWN INDICATION
     Dosage: 12.5 MG, UNKNOWN
     Route: 048
     Dates: start: 20170602
  3. LARTRUVO [Suspect]
     Active Substance: OLARATUMAB
     Indication: SARCOMA
     Dosage: 1450 MG, SINGLE
     Route: 042
     Dates: start: 20170602, end: 20170602
  4. MORPHINE [Concomitant]
     Active Substance: MORPHINE
     Indication: SARCOMA
     Dosage: 3 MG, SINGLE
     Route: 042
     Dates: start: 20170602
  5. FOSAPREPITANT [Concomitant]
     Active Substance: FOSAPREPITANT
     Indication: PRODUCT USED FOR UNKNOWN INDICATION
     Dosage: 150 MG, SINGLE
     Route: 042
     Dates: start: 20170602
  6. ONDANSETRON [Concomitant]
     Active Substance: ONDANSETRON
     Indication: PRODUCT USED FOR UNKNOWN INDICATION
     Dosage: 16 MG, OTHER
     Route: 042
     Dates: start: 20170602
  7. APO DEXAMETHASONE [Concomitant]
     Active Substance: DEXAMETHASONE
     Indication: PRODUCT USED FOR UNKNOWN INDICATION
     Dosage: 12 MG, SINGLE
     Route: 042
     Dates: start: 20170602

REACTIONS (1)
  - Infusion related reaction [Unknown]

NARRATIVE: CASE EVENT DATE: 20170602
